FAERS Safety Report 5676027-9 (Version None)
Quarter: 2008Q2

REPORT INFORMATION
  Report Type: 
  Country: None (occurrence: None)
  Receive Date: 20080312
  Receipt Date: 20070116
  Transmission Date: 20081010
  Serious: Yes (Hospitalization)
  Sender: FDA-Public Use
  Company Number: 0700134

PATIENT
  Age: 56 Year
  Sex: Male
  Weight: 117.9352 kg

DRUGS (3)
  1. EQUATE NAPROXEN SOD [Suspect]
     Indication: BACK PAIN
     Dosage: 440MG ONCE DAILY
     Dates: start: 20040101, end: 20070114
  2. ATENOLOL [Concomitant]
  3. PEPCID [Concomitant]

REACTIONS (9)
  - ANAPHYLACTIC REACTION [None]
  - DIZZINESS [None]
  - DYSPNOEA [None]
  - HYPOTENSION [None]
  - LARYNGOSPASM [None]
  - NAUSEA [None]
  - PRURITUS [None]
  - RASH [None]
  - URTICARIA [None]
